FAERS Safety Report 6842731-X (Version None)
Quarter: 2010Q3

REPORT INFORMATION
  Report Type: 
  Country: None (occurrence: None)
  Receive Date: 20100714
  Receipt Date: 20071004
  Transmission Date: 20110219
  Serious: No
  Sender: FDA-Public Use
  Company Number: US-PFIZER INC-2007065871

PATIENT
  Sex: Female
  Weight: 81.8 kg

DRUGS (7)
  1. CHANTIX [Suspect]
     Indication: SMOKING CESSATION THERAPY
     Dates: start: 20070101, end: 20070101
  2. TOPROL-XL [Concomitant]
  3. PLAVIX [Concomitant]
     Indication: CEREBROVASCULAR ACCIDENT
  4. ZOLOFT [Concomitant]
  5. HYDROCHLOROTHIAZIDE [Concomitant]
  6. VERAPAMIL [Concomitant]
  7. ZOCOR [Concomitant]

REACTIONS (3)
  - ABNORMAL DREAMS [None]
  - PALPITATIONS [None]
  - PSYCHOMOTOR HYPERACTIVITY [None]
